FAERS Safety Report 6865954-2 (Version None)
Quarter: 2010Q3

REPORT INFORMATION
  Report Type: 
  Country: None (occurrence: None)
  Receive Date: 20100722
  Receipt Date: 20100707
  Transmission Date: 20110219
  Serious: Yes (Other)
  Sender: FDA-Public Use
  Company Number: PHHY2010JP44855

PATIENT
  Sex: Male

DRUGS (1)
  1. ZOMETA [Suspect]
     Indication: METASTASES TO BONE

REACTIONS (6)
  - APHTHOUS STOMATITIS [None]
  - BONE DISORDER [None]
  - ENANTHEMA [None]
  - ORAL TORUS [None]
  - OSTEONECROSIS OF JAW [None]
  - TOOTH EXTRACTION [None]
